FAERS Safety Report 6038645-8 (Version None)
Quarter: 2009Q1

REPORT INFORMATION
  Report Type: 
  Country: None (occurrence: None)
  Receive Date: 20090115
  Receipt Date: 20080909
  Transmission Date: 20090719
  Serious: No
  Sender: FDA-Public Use
  Company Number: US-BAYER-200813435BCC

PATIENT
  Age: 63 Year
  Sex: Female
  Weight: 95 kg

DRUGS (5)
  1. ALEVE (CAPLET) [Suspect]
     Indication: ARTHRALGIA
     Dosage: TOTAL DAILY DOSE: 440 MG  UNIT DOSE: 220 MG
     Route: 048
     Dates: start: 20080803, end: 20080805
  2. SYNTHROID [Concomitant]
  3. CRESTOR [Concomitant]
  4. PRILOSEC [Concomitant]
  5. MULTI-VITAMINS [Concomitant]

REACTIONS (5)
  - FATIGUE [None]
  - HYPERVIGILANCE [None]
  - NAUSEA [None]
  - ORAL DISCOMFORT [None]
  - SWOLLEN TONGUE [None]
